FAERS Safety Report 10155107 (Version 1)
Quarter: 2014Q2

REPORT INFORMATION
  Report Type: Spontaneous
  Country: JP (occurrence: JP)
  Receive Date: 20140506
  Receipt Date: 20140506
  Transmission Date: 20141212
  Serious: Yes (Other)
  Sender: FDA-Public Use
  Company Number: JP-WATSON-2014-09099

PATIENT
  Sex: Male

DRUGS (1)
  1. RAPAFLO (WATSON LABORATORIES) [Suspect]
     Indication: DYSURIA
     Dosage: UNK, UNKNOWN
     Route: 048

REACTIONS (1)
  - Platelet count decreased [Not Recovered/Not Resolved]
